FAERS Safety Report 23268793 (Version 2)
Quarter: 2024Q2

REPORT INFORMATION
  Report Type: Report from Study
  Country: NL (occurrence: NL)
  Receive Date: 20231206
  Receipt Date: 20240522
  Transmission Date: 20240716
  Serious: Yes (Life-Threatening, Other)
  Sender: FDA-Public Use
  Company Number: NL-SANDOZ-SDZ2023NL062773

PATIENT
  Age: 70 Year
  Sex: Female

DRUGS (1)
  1. ACLASTA [Suspect]
     Active Substance: ZOLEDRONIC ACID
     Indication: Osteoporosis
     Dosage: 1.00 X PER 26 WEEKS
     Route: 042

REACTIONS (2)
  - Hepatic cancer [Unknown]
  - Cholangitis [Unknown]

NARRATIVE: CASE EVENT DATE: 20231030
